FAERS Safety Report 7818848-X (Version None)
Quarter: 2011Q4

REPORT INFORMATION
  Report Type: 
  Country: None (occurrence: None)
  Receive Date: 20111018
  Receipt Date: 20111011
  Transmission Date: 20120403
  Serious: Yes (Other)
  Sender: FDA-Public Use
  Company Number: JP-BRISTOL-MYERS SQUIBB COMPANY-16166639

PATIENT
  Age: 43 Year
  Sex: Female

DRUGS (4)
  1. HALOPERIDOL [Concomitant]
  2. RISPERIDONE [Concomitant]
  3. QUETIAPINE FUMARATE [Concomitant]
  4. ABILIFY [Suspect]
     Indication: SCHIZOPHRENIA
     Dosage: ALSO RECEIVED 30MG TAB OF ARIPIRAZOLE VIA ORAL
     Route: 048

REACTIONS (1)
  - MENTAL STATUS CHANGES [None]
